FAERS Safety Report 7555863-8 (Version None)
Quarter: 2011Q2

REPORT INFORMATION
  Report Type: 
  Country: None (occurrence: None)
  Receive Date: 20110618
  Receipt Date: 20090306
  Transmission Date: 20111010
  Serious: Yes (Death, Hospitalization, Other)
  Sender: FDA-Public Use
  Company Number: US-BAYER-200915241NA

PATIENT
  Age: 71 Year
  Sex: Male
  Weight: 98 kg

DRUGS (28)
  1. TRASYLOL [Suspect]
     Indication: AORTIC VALVE REPLACEMENT
     Dosage: 200 ML PRIME, UNK
     Route: 042
     Dates: start: 20070312, end: 20070312
  2. CASODEX [Concomitant]
     Indication: PROSTATE CANCER
     Dosage: UNK
     Dates: start: 20000101, end: 20020101
  3. HEPARIN [Concomitant]
     Dosage: 10,000, UNK
     Dates: start: 20070312, end: 20070312
  4. TRASYLOL [Suspect]
     Indication: CORONARY ARTERY BYPASS
     Dosage: 1 ML, UNK
     Route: 042
     Dates: start: 20070312, end: 20070312
  5. NEURONTIN [Concomitant]
     Indication: PREOPERATIVE CARE
     Dosage: 300 MG, QD
     Route: 042
     Dates: start: 20070312
  6. EPINEPHRINE [Concomitant]
     Dosage: 10, UNK
     Route: 042
     Dates: start: 20070312, end: 20070312
  7. DOPAMINE HCL [Concomitant]
     Dosage: 5-6 MCG/KG/MIN, UNK
     Route: 042
     Dates: start: 20070312, end: 20070312
  8. VASOPRESSIN [Concomitant]
     Dosage: 20 UNITS, UNK
     Route: 042
     Dates: start: 20070312, end: 20070312
  9. LOTREL [Concomitant]
     Dosage: 5/20 BID
     Route: 048
     Dates: start: 19970101
  10. ASPIRIN [Concomitant]
     Dosage: 162 MG, QD
     Route: 048
  11. LIDOCAINE [Concomitant]
     Dosage: UNK
     Dates: start: 20070312, end: 20070312
  12. MAGNESIUM [Concomitant]
     Dosage: 4 GMS, UNK
     Dates: start: 20070312, end: 20070312
  13. COUMADIN [Concomitant]
     Dosage: 7.5 MG MONDAY, UNK
     Route: 048
     Dates: start: 20000101
  14. TOPROL-XL [Concomitant]
     Dosage: 100 MG, QD
     Route: 048
     Dates: start: 20000101
  15. NIMBEX [Concomitant]
     Dosage: 10-20, UNK
     Route: 042
     Dates: start: 20070312, end: 20070312
  16. NEOSYNEPHRINE [Concomitant]
     Dosage: 50, UNK
     Route: 042
     Dates: start: 20070312, end: 20070312
  17. TRASYLOL [Suspect]
     Dosage: 50 ML/HR INFUSION, UNK
     Route: 042
     Dates: start: 20070312, end: 20070312
  18. TRENTAL [Concomitant]
     Dosage: 400 MG, TID
     Route: 048
     Dates: start: 20000101
  19. FENTANYL-100 [Concomitant]
     Dosage: 250-500 MCG, UNK
     Route: 042
     Dates: start: 20070312, end: 20070312
  20. PROTAMINE SULFATE [Concomitant]
     Dosage: 400 MG, UNK
     Route: 042
     Dates: start: 20070312, end: 20070313
  21. SODIUM CHLORIDE [Concomitant]
     Dosage: UNK
     Route: 042
     Dates: start: 20070312, end: 20070312
  22. LIPITOR [Concomitant]
     Dosage: 10 MG, QD
     Route: 048
     Dates: start: 20000101
  23. VERSED [Concomitant]
     Dosage: 1-2 MG, UNK
     Route: 042
     Dates: start: 20070312, end: 20070312
  24. LACTATED RINGER'S [Concomitant]
     Dosage: UNK
     Route: 042
     Dates: start: 20070312, end: 20070312
  25. ANCEF [Concomitant]
     Indication: PREOPERATIVE CARE
     Dosage: UNK
     Route: 042
     Dates: start: 20070312
  26. VANCOMYCIN [Concomitant]
     Indication: PREOPERATIVE CARE
     Dosage: 1.45 GM, UNK
     Route: 042
     Dates: start: 20070312
  27. INSULIN [Concomitant]
     Dosage: 1-2 ML/HR, UNK
     Route: 042
     Dates: start: 20070312, end: 20070312
  28. SODIUM BICARBONATE [Concomitant]
     Dosage: 25, UNK
     Route: 042
     Dates: start: 20070312, end: 20070312

REACTIONS (5)
  - PAIN [None]
  - ADVERSE EVENT [None]
  - ANXIETY [None]
  - DEATH [None]
  - RENAL FAILURE [None]
